FAERS Safety Report 16218048 (Version 1)
Quarter: 2019Q2

REPORT INFORMATION
  Report Type: Spontaneous
  Country: US (occurrence: US)
  Receive Date: 20190419
  Receipt Date: 20190419
  Transmission Date: 20190711
  Serious: No
  Sender: FDA-Public Use
  Company Number: US-BAYER-2019-080830

PATIENT
  Age: 72 Year
  Sex: Male

DRUGS (1)
  1. APROTININ [Suspect]
     Active Substance: APROTININ
     Dosage: UNK

REACTIONS (1)
  - Drug hypersensitivity [None]
